FAERS Safety Report 6251436-8 (Version None)
Quarter: 2009Q2

REPORT INFORMATION
  Report Type: 
  Country: None (occurrence: None)
  Receive Date: 20090630
  Receipt Date: 20090619
  Transmission Date: 20091009
  Serious: Yes (Hospitalization)
  Sender: FDA-Public Use
  Company Number: US-MERCK-0901USA04281

PATIENT
  Age: 59 Year
  Sex: Female

DRUGS (2)
  1. FOSAMAX [Suspect]
     Indication: OSTEOPOROSIS
     Route: 048
     Dates: start: 19980301, end: 20060601
  2. FOSAMAX [Suspect]
     Route: 048
     Dates: start: 19980301, end: 20060601

REACTIONS (8)
  - ABSCESS [None]
  - ADVERSE EVENT [None]
  - IMPAIRED HEALING [None]
  - NERVE INJURY [None]
  - ORAL INFECTION [None]
  - OSTEONECROSIS [None]
  - RESORPTION BONE INCREASED [None]
  - TRISMUS [None]
